FAERS Safety Report 6115665-6 (Version None)
Quarter: 2009Q1

REPORT INFORMATION
  Report Type: 
  Country: None (occurrence: None)
  Receive Date: 20090313
  Receipt Date: 20090309
  Transmission Date: 20090719
  Serious: No
  Sender: FDA-Public Use
  Company Number: US-B.I. PHARMACEUTICALS,INC./RIDGEFIELD-2008-BP-02127BP

PATIENT
  Sex: Female

DRUGS (4)
  1. COMBIVENT [Suspect]
     Indication: EMPHYSEMA
     Dosage: 8PUF
     Route: 055
     Dates: start: 19960101
  2. ADVAIR HFA [Concomitant]
     Indication: EMPHYSEMA
  3. SYNTHROID [Concomitant]
     Indication: HYPOTHYROIDISM
  4. EYE DROPS [Concomitant]
     Indication: GLAUCOMA
     Route: 031

REACTIONS (2)
  - DRUG EFFECT DECREASED [None]
  - DYSPNOEA [None]
